FAERS Safety Report 4368611-X (Version None)
Quarter: 2004Q2

REPORT INFORMATION
  Report Type: 
  Country: None (occurrence: None)
  Receive Date: 20040528
  Receipt Date: 20040522
  Transmission Date: 20050107
  Serious: Yes (Hospitalization)
  Sender: FDA-Public Use
  Company Number: 30019984-NA01-1

PATIENT
  Age: 70 Year
  Sex: Male

DRUGS (7)
  1. EXTRANEAL [Suspect]
     Indication: PERITONEAL DIALYSIS
     Dosage: 7.5% ICODEXTRIN 1.5L QD IP
     Dates: start: 20031101
  2. DIANEAL 1.5% 1.5L DAILY IP [Concomitant]
  3. DIANEAL 2.5% 1.5L TWICE DAILY IP [Concomitant]
  4. TICLOPIDINE HCL [Concomitant]
  5. ALFACALCIDOL [Concomitant]
  6. FUROSEMIDE [Concomitant]
  7. LEVOTHYROXINE SODIUM [Concomitant]

REACTIONS (3)
  - PRURITUS [None]
  - PYREXIA [None]
  - RASH [None]
